FAERS Safety Report 25575981 (Version 2)
Quarter: 2025Q3

REPORT INFORMATION
  Report Type: Spontaneous
  Country: EU (occurrence: EU)
  Receive Date: 20250718
  Receipt Date: 20250805
  Transmission Date: 20251020
  Serious: Yes (Other)
  Sender: TAKEDA
  Company Number: None

PATIENT
  Age: 49 Year
  Sex: Male
  Weight: 85 kg

DRUGS (3)
  1. ENTYVIO [Suspect]
     Active Substance: VEDOLIZUMAB
     Indication: Colitis ulcerative
  2. INFLIXIMAB [Suspect]
     Active Substance: INFLIXIMAB
     Indication: Colitis ulcerative
  3. INFLIXIMAB [Suspect]
     Active Substance: INFLIXIMAB
     Dosage: 120 MILLIGRAM, Q2WEEKS
     Dates: start: 202005, end: 202407

REACTIONS (1)
  - Carcinoma in situ of penis [Not Recovered/Not Resolved]

NARRATIVE: CASE EVENT DATE: 20250604
